FAERS Safety Report 11359159 (Version 1)
Quarter: 2015Q3

REPORT INFORMATION
  Report Type: Spontaneous
  Country: US (occurrence: None)
  Receive Date: 20150807
  Receipt Date: 20150807
  Transmission Date: 20151125
  Serious: Yes (Other)
  Sender: FDA-Public Use
  Company Number: None

PATIENT
  Age: 73 Year
  Sex: Female
  Weight: 83.92 kg

DRUGS (1)
  1. LATANOPROST OPHTHALMIC SOLUTION 0.005% [Suspect]
     Active Substance: LATANOPROST
     Indication: GLAUCOMA
     Dosage: 125IU/2.5 ML 1 DROP BOTH EYES @ BEDTIME EYE DROPS
     Route: 031
     Dates: start: 201310, end: 20140809

REACTIONS (3)
  - Skin discolouration [None]
  - Nightmare [None]
  - Tinnitus [None]
